FAERS Safety Report 6112027-2 (Version None)
Quarter: 2009Q1

REPORT INFORMATION
  Report Type: 
  Country: None (occurrence: None)
  Receive Date: 20090311
  Receipt Date: 20090304
  Transmission Date: 20090719
  Serious: Yes (Other)
  Sender: FDA-Public Use
  Company Number: US-ABBOTT-09P-163-0560884-00

PATIENT
  Age: 61 Year
  Sex: Male

DRUGS (1)
  1. VICODIN HP [Suspect]
     Indication: BREAKTHROUGH PAIN

REACTIONS (2)
  - LOSS OF CONSCIOUSNESS [None]
  - RESPIRATORY FAILURE [None]
